FAERS Safety Report 9009794 (Version 1)
Quarter: 2013Q1

REPORT INFORMATION
  Report Type: Spontaneous
  Country: FR (occurrence: FR)
  Receive Date: 20130110
  Receipt Date: 20130110
  Transmission Date: 20140127
  Serious: Yes (Hospitalization)
  Sender: FDA-Public Use
  Company Number: FR-US-EMD SERONO, INC.-7185814

PATIENT
  Age: 29 Year
  Sex: Female

DRUGS (3)
  1. GONAL-F [Suspect]
     Indication: IN VITRO FERTILISATION
     Route: 058
     Dates: start: 20120127, end: 20120203
  2. GONADOTROPHIN, CHORIONIC [Suspect]
     Indication: IN VITRO FERTILISATION
     Route: 030
     Dates: start: 20120206, end: 20120207
  3. TRIPTORELIN ACETATE [Suspect]
     Indication: IN VITRO FERTILISATION
     Route: 030
     Dates: start: 20120116, end: 20120117

REACTIONS (2)
  - Ovarian hyperstimulation syndrome [Recovered/Resolved]
  - Ascites [Recovered/Resolved]
